FAERS Safety Report 9322945 (Version 2)
Quarter: 2013Q2

REPORT INFORMATION
  Report Type: Spontaneous
  Country: US (occurrence: US)
  Receive Date: 20130603
  Receipt Date: 20130625
  Transmission Date: 20140414
  Serious: Yes (Hospitalization, Other)
  Sender: FDA-Public Use
  Company Number: US-AMGEN-USASP2013038414

PATIENT
  Age: 61 Year
  Sex: Male
  Weight: 62.13 kg

DRUGS (12)
  1. ENBREL [Suspect]
     Indication: RHEUMATOID ARTHRITIS
     Dosage: 50 MG, QWK
     Route: 058
     Dates: start: 20121015, end: 201304
  2. PLAQUENIL                          /00072602/ [Concomitant]
     Dosage: 200 MG, UNK
  3. PREDNISONE [Concomitant]
     Dosage: 10 MG, UNK
  4. DILTIAZEM [Concomitant]
     Dosage: 180 MG, CD
  5. ASPIRE [Concomitant]
     Dosage: 81 MG, EC
  6. LANSOPRAZOLE [Concomitant]
     Dosage: 15 MG, DR
  7. LOSARTAN/HCT [Concomitant]
     Dosage: UNK, 50-12.5
  8. FISH OIL [Concomitant]
     Dosage: UNK
  9. NITROGLYCERIN [Concomitant]
     Dosage: 0.3 MG, UNK
  10. MORPHINE SULFATE [Concomitant]
     Dosage: 30 MG, UNK
  11. OXYCODONE [Concomitant]
     Dosage: 20 MG, UNK
  12. SULFASALAZIN [Concomitant]
     Dosage: 50 MG, DR

REACTIONS (1)
  - Hepatitis C [Recovered/Resolved]
